FAERS Safety Report 5692121-0 (Version None)
Quarter: 2008Q2

REPORT INFORMATION
  Report Type: 
  Country: None (occurrence: None)
  Receive Date: 20080402
  Receipt Date: 20080209
  Transmission Date: 20081010
  Serious: Yes (Other)
  Sender: FDA-Public Use
  Company Number: CA-PFIZER INC-2008012464

PATIENT
  Age: 55 Year
  Sex: Female
  Weight: 58 kg

DRUGS (1)
  1. SUTENT [Suspect]
     Indication: OVARIAN EPITHELIAL CANCER
     Dosage: DAILY DOSE:50MG
     Route: 048
     Dates: start: 20070525, end: 20080114

REACTIONS (1)
  - CEREBRAL INFARCTION [None]
